FAERS Safety Report 10077996 (Version 2)
Quarter: 2014Q2

REPORT INFORMATION
  Report Type: Spontaneous
  Country: US (occurrence: US)
  Receive Date: 20140415
  Receipt Date: 20140523
  Transmission Date: 20141212
  Serious: Yes (Hospitalization)
  Sender: FDA-Public Use
  Company Number: US-BIOGENIDEC-2014BI033149

PATIENT
  Age: 49 Year
  Sex: Female

DRUGS (2)
  1. AVONEX [Suspect]
     Indication: MULTIPLE SCLEROSIS
     Route: 030
     Dates: start: 19990201
  2. AVONEX [Suspect]
     Indication: MULTIPLE SCLEROSIS
     Route: 030
     Dates: start: 20140312

REACTIONS (6)
  - Dehydration [Unknown]
  - Urinary tract infection [Unknown]
  - Stress [Unknown]
  - Peptic ulcer haemorrhage [Recovered/Resolved]
  - Malnutrition [Recovered/Resolved]
  - Road traffic accident [Recovered/Resolved]
